FAERS Safety Report 10351013 (Version 1)
Quarter: 2014Q3

REPORT INFORMATION
  Report Type: Spontaneous
  Country: FR (occurrence: FR)
  Receive Date: 20140730
  Receipt Date: 20140730
  Transmission Date: 20150326
  Serious: Yes (Hospitalization, Other)
  Sender: FDA-Public Use
  Company Number: FR-ASTRAZENECA-2014SE53224

PATIENT
  Age: 12439 Day
  Sex: Female

DRUGS (2)
  1. DIPRIVAN [Suspect]
     Active Substance: PROPOFOL
     Indication: INDUCTION OF ANAESTHESIA
     Dosage: ONCE
     Route: 042
     Dates: start: 20121217, end: 20121217
  2. RAPIFEN [Suspect]
     Active Substance: ALFENTANIL HYDROCHLORIDE
     Indication: INDUCTION OF ANAESTHESIA
     Dosage: ONCE
     Route: 042
     Dates: start: 20121217, end: 20121217

REACTIONS (4)
  - Tachycardia [Recovered/Resolved]
  - Oxygen saturation decreased [Recovered/Resolved]
  - Bronchospasm [Recovered/Resolved]
  - Hypotension [Recovered/Resolved]

NARRATIVE: CASE EVENT DATE: 20121217
